FAERS Safety Report 9152488 (Version 1)
Quarter: 2013Q1

REPORT INFORMATION
  Report Type: Spontaneous
  Country: US (occurrence: US)
  Receive Date: 20130308
  Receipt Date: 20130308
  Transmission Date: 20140127
  Serious: Yes (Other)
  Sender: FDA-Public Use
  Company Number: US-009507513-1303USA001868

PATIENT
  Age: 46 Year
  Sex: Female

DRUGS (15)
  1. SINGULAIR [Suspect]
     Dosage: UNK
  2. PERCOCET [Concomitant]
     Indication: BLOOD CHOLESTEROL INCREASED
     Dosage: 1 TAB, QID
  3. KLONOPIN [Concomitant]
     Indication: DEPRESSION
     Dosage: .5 MG, 5X DAY
  4. PROVIGIL [Concomitant]
     Indication: MENOPAUSE
     Dosage: 100 MG, UNK
  5. WELLBUTRIN XL [Concomitant]
     Indication: PRODUCT USED FOR UNKNOWN INDICATION
  6. NEURONTIN [Concomitant]
     Dosage: 600 MG, UNK
  7. LIPITOR [Concomitant]
     Dosage: 10 MG, UNK
  8. CYMBALTA [Concomitant]
     Dosage: UNK
  9. EFFEXOR [Concomitant]
     Dosage: UNK
  10. REBIF [Concomitant]
     Dosage: UNK
  11. CELEXA [Concomitant]
     Dosage: UNK
  12. ZOLOFT [Concomitant]
     Dosage: 100 MG, UNK
     Route: 048
  13. ZOLOFT [Concomitant]
     Dosage: 50 MG, UNK
     Route: 048
  14. ZOLOFT [Concomitant]
     Dosage: 50 MG, BID
     Route: 048
  15. WELLBUTRIN [Concomitant]
     Dosage: UNK
     Route: 048

REACTIONS (16)
  - Movement disorder [Unknown]
  - Cardiac arrest [Unknown]
  - Depressed mood [Unknown]
  - Drug hypersensitivity [Unknown]
  - Drug ineffective [Unknown]
  - Hyperhidrosis [Unknown]
  - Abdominal discomfort [Unknown]
  - Hypertension [Unknown]
  - Pruritus [Unknown]
  - Muscle spasms [Unknown]
  - Musculoskeletal discomfort [Unknown]
  - Musculoskeletal pain [Unknown]
  - Nausea [Unknown]
  - Pain [Unknown]
  - Palpitations [Unknown]
  - Hypersensitivity [Unknown]
